FAERS Safety Report 10689177 (Version 3)
Quarter: 2017Q3

REPORT INFORMATION
  Report Type: Spontaneous
  Country: US (occurrence: US)
  Receive Date: 20150105
  Receipt Date: 20170922
  Transmission Date: 20171127
  Serious: Yes (Life-Threatening, Hospitalization, Disabling, Other)
  Sender: FDA-Public Use
  Company Number: US-009507513-1412USA013459

PATIENT
  Age: 42 Year
  Sex: Female

DRUGS (3)
  1. MAXALT [Suspect]
     Active Substance: RIZATRIPTAN BENZOATE
     Dosage: SPORADICALLY
     Route: 048
     Dates: start: 2013
  2. CLARITIN [Concomitant]
     Active Substance: LORATADINE
  3. MAXALT [Suspect]
     Active Substance: RIZATRIPTAN BENZOATE
     Indication: MIGRAINE
     Dosage: SPORADICALLY
     Route: 048
     Dates: start: 2013

REACTIONS (5)
  - Hypoxic-ischaemic encephalopathy [Unknown]
  - Cardiomyopathy [Unknown]
  - Loss of consciousness [Unknown]
  - Drug ineffective [Unknown]
  - Cardiac arrest [Unknown]

NARRATIVE: CASE EVENT DATE: 20140102
